FAERS Safety Report 21448305 (Version 2)
Quarter: 2025Q2

REPORT INFORMATION
  Report Type: Spontaneous
  Country: CZ (occurrence: CZ)
  Receive Date: 20221013
  Receipt Date: 20250623
  Transmission Date: 20250717
  Serious: Yes (Other)
  Sender: AUROBINDO
  Company Number: CZ-GLENMARK PHARMACEUTICALS-2022GMK073982

PATIENT
  Age: 54 Year
  Sex: Female

DRUGS (4)
  1. AMLODIPINE [Suspect]
     Active Substance: AMLODIPINE BESYLATE
     Indication: Hypertension
     Route: 065
  2. BISOPROLOL [Suspect]
     Active Substance: BISOPROLOL
     Indication: Hypertension
     Route: 065
  3. PERINDOPRIL [Suspect]
     Active Substance: PERINDOPRIL
     Indication: Hypertension
     Route: 065
  4. Ylpio [Concomitant]
     Indication: Hypertension
     Route: 065

REACTIONS (2)
  - Hypertension [Recovered/Resolved]
  - Adverse drug reaction [Unknown]
